FAERS Safety Report 18435841 (Version 1)
Quarter: 2020Q4

REPORT INFORMATION
  Report Type: Report from Study
  Country: PT (occurrence: PT)
  Receive Date: 20201028
  Receipt Date: 20201028
  Transmission Date: 20210114
  Serious: Yes (Other)
  Sender: FDA-Public Use
  Company Number: PT-ROCHE-2703515

PATIENT

DRUGS (20)
  1. PARACETAMOL [Concomitant]
     Active Substance: ACETAMINOPHEN
     Route: 048
     Dates: start: 20190307, end: 20190307
  2. HYDROXYZINE [Concomitant]
     Active Substance: HYDROXYZINE HYDROCHLORIDE
     Indication: PREMEDICATION
     Route: 048
     Dates: start: 20190307, end: 20190307
  3. FENTICONAZOLE [Concomitant]
     Active Substance: FENTICONAZOLE
     Dosage: PV (PER VAGINA)
     Dates: start: 20190410, end: 20190423
  4. IBUPROFEN. [Concomitant]
     Active Substance: IBUPROFEN
     Route: 048
     Dates: start: 20190401, end: 20190405
  5. PARACETAMOL [Concomitant]
     Active Substance: ACETAMINOPHEN
     Route: 048
     Dates: start: 20190410, end: 20190410
  6. VERRUMAL [Concomitant]
     Dosage: 1 U
     Route: 061
     Dates: start: 20190422
  7. METHYLPREDNISOLONE. [Suspect]
     Active Substance: METHYLPREDNISOLONE
     Dosage: THE MOTHER DOSE WAS 125 MG
     Route: 064
     Dates: start: 20190321, end: 20190321
  8. ESCITALOPRAM [Suspect]
     Active Substance: ESCITALOPRAM OXALATE
     Indication: PRODUCT USED FOR UNKNOWN INDICATION
     Dosage: THE MOTHER DOSE WAS 10 MG
     Route: 064
     Dates: start: 20190207
  9. HYDROXYZINE [Concomitant]
     Active Substance: HYDROXYZINE HYDROCHLORIDE
     Route: 048
     Dates: start: 20190321, end: 20190321
  10. HYDROXYZINE [Concomitant]
     Active Substance: HYDROXYZINE HYDROCHLORIDE
     Dosage: ONCE BEFORE INFUSION
     Route: 048
     Dates: start: 20190905, end: 20190905
  11. METHYLPREDNISOLONE. [Suspect]
     Active Substance: METHYLPREDNISOLONE
     Indication: PRODUCT USED FOR UNKNOWN INDICATION
     Dosage: THE MOTHER DOSE WAS 125 MG
     Route: 064
     Dates: start: 20190307, end: 20190307
  12. METAMIZOLE [Concomitant]
     Active Substance: METAMIZOLE
     Dosage: 1 TABLET
     Route: 048
     Dates: start: 20190410, end: 20190410
  13. METILPREDNISOLONE [Concomitant]
     Active Substance: METHYLPREDNISOLONE
     Route: 042
     Dates: start: 20190318, end: 20190320
  14. PARACETAMOL [Concomitant]
     Active Substance: ACETAMINOPHEN
     Route: 048
     Dates: start: 20190321, end: 20190321
  15. OCRELIZUMAB. [Suspect]
     Active Substance: OCRELIZUMAB
     Dosage: THE MOTHER DOSE WAS 600 MG
     Route: 064
     Dates: start: 20190905
  16. LEVOFLOXACIN. [Concomitant]
     Active Substance: LEVOFLOXACIN
     Route: 048
     Dates: start: 20190401, end: 20190408
  17. FLUCONAZOLE. [Concomitant]
     Active Substance: FLUCONAZOLE
     Dates: start: 20190410, end: 20190423
  18. OCRELIZUMAB. [Suspect]
     Active Substance: OCRELIZUMAB
     Indication: PRODUCT USED FOR UNKNOWN INDICATION
     Dosage: THE MOTHER DOSE WAS 600 MG
     Route: 064
     Dates: start: 20190307
  19. METHYLPREDNISOLONE. [Suspect]
     Active Substance: METHYLPREDNISOLONE
     Dosage: THE MOTHER DOSE WAS 125 MG
     Route: 064
     Dates: start: 20190905, end: 20190905
  20. PARACETAMOL [Concomitant]
     Active Substance: ACETAMINOPHEN
     Indication: PREMEDICATION
     Route: 048
     Dates: start: 20190331, end: 20190405

REACTIONS (2)
  - Hydrops foetalis [Unknown]
  - Foetal exposure during pregnancy [Unknown]

NARRATIVE: CASE EVENT DATE: 20201001
